FAERS Safety Report 9852757 (Version 2)
Quarter: 2014Q3

REPORT INFORMATION
  Report Type: Spontaneous
  Country: US (occurrence: US)
  Receive Date: 20140129
  Receipt Date: 20140721
  Transmission Date: 20150326
  Serious: No
  Sender: FDA-Public Use
  Company Number: US-009507513-1401USA011479

PATIENT
  Sex: Female

DRUGS (1)
  1. NUVARING [Suspect]
     Active Substance: ETHINYL ESTRADIOL\ETONOGESTREL
     Dosage: UNK
     Route: 067
     Dates: start: 201101

REACTIONS (7)
  - Sinusitis [Unknown]
  - Cataract [Unknown]
  - Retinal vascular thrombosis [Unknown]
  - Fatigue [Unknown]
  - Pineal gland cyst [Unknown]
  - Glaucoma [Unknown]
  - Visual impairment [Unknown]

NARRATIVE: CASE EVENT DATE: 201101
